FAERS Safety Report 24429974 (Version 1)
Quarter: 2024Q4

REPORT INFORMATION
  Report Type: Spontaneous
  Country: FR (occurrence: FR)
  Receive Date: 20241012
  Receipt Date: 20241012
  Transmission Date: 20250115
  Serious: Yes (Other)
  Sender: BRISTOL MYERS SQUIBB
  Company Number: None

PATIENT
  Age: 33 Year
  Sex: Female
  Weight: 83 kg

DRUGS (5)
  1. ELIQUIS [Suspect]
     Active Substance: APIXABAN
     Indication: Deep vein thrombosis
     Dates: start: 20230117, end: 20230424
  2. URSODIOL [Suspect]
     Active Substance: URSODIOL
     Indication: Cholestasis of pregnancy
     Dates: start: 20231003, end: 20231003
  3. DALTEPARIN SODIUM [Suspect]
     Active Substance: DALTEPARIN SODIUM
     Indication: Deep vein thrombosis
     Dates: start: 20231013, end: 20231112
  4. INNOHEP [Suspect]
     Active Substance: TINZAPARIN SODIUM
     Indication: Deep vein thrombosis
     Dates: start: 20230425, end: 20231012
  5. VENOFER [Suspect]
     Active Substance: IRON SUCROSE
     Indication: Anaemia
     Dates: start: 20230929, end: 20230929

REACTIONS (3)
  - Normal newborn [Unknown]
  - Maternal exposure during pregnancy [Recovered/Resolved]
  - Cholestasis of pregnancy [Unknown]

NARRATIVE: CASE EVENT DATE: 20230101
